FAERS Safety Report 7545423-7 (Version None)
Quarter: 2011Q2

REPORT INFORMATION
  Report Type: 
  Country: None (occurrence: None)
  Receive Date: 20110614
  Receipt Date: 20110606
  Transmission Date: 20111010
  Serious: Yes (Other)
  Sender: FDA-Public Use
  Company Number: US-AMGEN-USASP2011026574

PATIENT
  Sex: Male
  Weight: 84.807 kg

DRUGS (26)
  1. AMICAR [Concomitant]
     Dosage: 1 G, Q6H
     Route: 048
  2. PEPCID [Concomitant]
     Dosage: 20 MG, BID
     Route: 048
  3. PREDNISONE [Concomitant]
  4. METOPROLOL [Concomitant]
     Dosage: 75 MG, BID
     Route: 048
  5. FLOMAX [Concomitant]
     Dosage: 0.4 MG, QD
     Route: 048
  6. LASIX [Concomitant]
     Dosage: 40 MG, QD
     Route: 048
  7. NITROGLYCERIN [Concomitant]
     Dosage: UNK
     Route: 060
  8. LEVOTHYROXINE SODIUM [Concomitant]
     Dosage: 0.25 MG, QD
     Route: 048
  9. ALLOPURINOL [Concomitant]
     Dosage: 200 MG, QD
     Route: 048
  10. JANUVIA [Concomitant]
     Dosage: UNK
  11. ZOFRAN [Concomitant]
     Dosage: 8 MG, PRN
     Route: 048
  12. CLARITIN                           /00413701/ [Concomitant]
     Dosage: 10 MG, QD
     Route: 048
  13. DOXYCYCLINE [Concomitant]
     Dosage: 100 MG, BID
     Route: 048
  14. PLATELETS [Concomitant]
  15. FISH OIL [Concomitant]
     Dosage: 1000 MG, BID
     Route: 048
  16. DECADRON [Concomitant]
     Dosage: 4 MG, BID
     Route: 048
  17. ASPIRIN [Concomitant]
     Dosage: 81 MG, QD
     Route: 048
  18. SIMVASTATIN [Concomitant]
     Dosage: 20 MG, QHS
  19. VITAMIN D [Concomitant]
     Dosage: 1000 IU, QD
     Route: 048
  20. VASOTEC [Concomitant]
     Dosage: 5 MG, BID
     Route: 048
  21. LOMOTIL [Concomitant]
  22. NPLATE [Suspect]
     Indication: IDIOPATHIC THROMBOCYTOPENIC PURPURA
     Dosage: 7 A?G/KG, QWK
     Route: 058
     Dates: start: 20110105, end: 20110216
  23. DIGOXIN [Concomitant]
     Dosage: 0.125 UNK, QD
     Route: 048
  24. FINASTERIDE [Concomitant]
     Dosage: 5 MG, QD
     Route: 048
  25. FOLIC ACID [Concomitant]
     Dosage: 1 MG, QD
     Route: 048
  26. OMEPRAZOLE [Concomitant]
     Dosage: 20 MG, BID
     Route: 048

REACTIONS (11)
  - DIFFUSE LARGE B-CELL LYMPHOMA [None]
  - SPLENOMEGALY [None]
  - STOMATITIS [None]
  - HAEMATOMA [None]
  - BLOOD URIC ACID INCREASED [None]
  - WEIGHT DECREASED [None]
  - PLATELET COUNT DECREASED [None]
  - GAIT DISTURBANCE [None]
  - BLOOD LACTATE DEHYDROGENASE INCREASED [None]
  - PETECHIAE [None]
  - OEDEMA PERIPHERAL [None]
